FAERS Safety Report 9846766 (Version 2)
Quarter: 2014Q1

REPORT INFORMATION
  Report Type: Spontaneous
  Country: US (occurrence: US)
  Receive Date: 20140127
  Receipt Date: 20140127
  Transmission Date: 20141002
  Serious: Yes (Other)
  Sender: FDA-Public Use
  Company Number: US-BANPHARM-20142069

PATIENT
  Age: 79 Year
  Sex: Male
  Weight: 74.84 kg

DRUGS (3)
  1. ALEVE LIQUID GELS 220 MG [Suspect]
     Indication: BACK PAIN
     Dosage: 1 DF, ONCE,
     Route: 048
     Dates: start: 20140122, end: 20140122
  2. CRESTOR [Concomitant]
  3. BLOOD PRESSURE MEDICATION [Concomitant]

REACTIONS (3)
  - Choking [Recovered/Resolved]
  - Foreign body [Recovered/Resolved]
  - Retching [Recovered/Resolved]
